FAERS Safety Report 12339133 (Version 1)
Quarter: 2016Q2

REPORT INFORMATION
  Report Type: Report from Study
  Country: US (occurrence: US)
  Receive Date: 20160505
  Receipt Date: 20160505
  Transmission Date: 20160815
  Serious: Yes (Other)
  Sender: FDA-Public Use
  Company Number: US-BAXALTA-2016BLT002486

PATIENT
  Age: 69 Year
  Sex: Female
  Weight: 78 kg

DRUGS (3)
  1. LASIX [Concomitant]
     Active Substance: FUROSEMIDE
     Indication: PRODUCT USED FOR UNKNOWN INDICATION
     Route: 048
  2. HYQVIA [Suspect]
     Active Substance: HUMAN IMMUNOGLOBULIN G\HYALURONIDASE RECOMBINANT HUMAN
     Dosage: UNK
     Route: 058
     Dates: start: 20160407, end: 20160407
  3. HYQVIA [Suspect]
     Active Substance: HUMAN IMMUNOGLOBULIN G\HYALURONIDASE RECOMBINANT HUMAN
     Indication: PRIMARY IMMUNODEFICIENCY SYNDROME
     Dosage: 10 G, 1ST RAMP UP
     Route: 058
     Dates: start: 20160407, end: 20160407

REACTIONS (26)
  - Condition aggravated [Recovering/Resolving]
  - Inappropriate schedule of drug administration [Unknown]
  - Hypoaesthesia [Recovering/Resolving]
  - Autoimmune disorder [Recovering/Resolving]
  - Somnolence [Recovered/Resolved]
  - Dizziness [Recovering/Resolving]
  - Infusion site induration [Recovered/Resolved]
  - Reaction to preservatives [Recovering/Resolving]
  - Multiple chemical sensitivity [Recovered/Resolved]
  - Infusion site erythema [Recovered/Resolved]
  - Infusion site swelling [Recovered/Resolved]
  - Condition aggravated [Recovered/Resolved]
  - Lethargy [Recovered/Resolved]
  - Dyspnoea [Recovered/Resolved]
  - Peripheral coldness [Recovered/Resolved]
  - Musculoskeletal stiffness [Recovered/Resolved]
  - Dyskinesia [Recovered/Resolved]
  - Unevaluable event [Recovered/Resolved]
  - Peripheral swelling [Recovered/Resolved]
  - Swelling face [Recovered/Resolved]
  - Vision blurred [Recovered/Resolved]
  - Feeling abnormal [Recovering/Resolving]
  - Migraine [Recovered/Resolved]
  - Multiple allergies [Not Recovered/Not Resolved]
  - Arthralgia [Recovering/Resolving]
  - Nausea [Recovered/Resolved]

NARRATIVE: CASE EVENT DATE: 20160407
